FAERS Safety Report 16981668 (Version 2)
Quarter: 2019Q4

REPORT INFORMATION
  Report Type: Spontaneous
  Country: CA (occurrence: CA)
  Receive Date: 20191101
  Receipt Date: 20191105
  Transmission Date: 20200122
  Serious: Yes (Other)
  Sender: FDA-Public Use
  Company Number: CA-ABBVIE-19K-028-2983655-00

PATIENT
  Sex: Female

DRUGS (3)
  1. LUPRON DEPOT [Suspect]
     Active Substance: LEUPROLIDE ACETATE
     Indication: ENDOMETRIOSIS
     Route: 030
  2. ORILISSA [Suspect]
     Active Substance: ELAGOLIX SODIUM
     Route: 048
  3. ORILISSA [Suspect]
     Active Substance: ELAGOLIX SODIUM
     Indication: ENDOMETRIOSIS
     Route: 048

REACTIONS (9)
  - Therapeutic product effect decreased [Unknown]
  - Night sweats [Unknown]
  - Depression [Unknown]
  - Dyspnoea [Unknown]
  - Endometriosis [Unknown]
  - Apathy [Unknown]
  - Unevaluable event [Unknown]
  - Procedural pain [Unknown]
  - Anxiety [Unknown]

NARRATIVE: CASE EVENT DATE: 2019
